FAERS Safety Report 24878981 (Version 1)
Quarter: 2025Q1

REPORT INFORMATION
  Report Type: Spontaneous
  Country: US (occurrence: US)
  Receive Date: 20250123
  Receipt Date: 20250123
  Transmission Date: 20250408
  Serious: No
  Sender: CATALYST PHARMA
  Company Number: US-CATALYST PHARMACEUTICALS, INC-US-CATA-24-00269

PATIENT
  Sex: Female
  Weight: 48.526 kg

DRUGS (2)
  1. FIRDAPSE [Suspect]
     Active Substance: AMIFAMPRIDINE PHOSPHATE
     Indication: Congenital myasthenic syndrome
     Dosage: ONE TABLET THREE TIMES DAILY
     Route: 048
     Dates: start: 20240305, end: 202403
  2. FIRDAPSE [Suspect]
     Active Substance: AMIFAMPRIDINE PHOSPHATE
     Dosage: ONE TABLET DAILY
     Route: 048
     Dates: start: 202403, end: 2024

REACTIONS (4)
  - Abdominal pain upper [Unknown]
  - Hypoaesthesia oral [Unknown]
  - Paraesthesia oral [Recovered/Resolved]
  - Off label use [Unknown]

NARRATIVE: CASE EVENT DATE: 20240101
